FAERS Safety Report 6306425-1 (Version None)
Quarter: 2009Q3

REPORT INFORMATION
  Report Type: 
  Country: None (occurrence: None)
  Receive Date: 20090812
  Receipt Date: 20090803
  Transmission Date: 20100115
  Serious: Yes (Hospitalization, Other)
  Sender: FDA-Public Use
  Company Number: US-ELI_LILLY_AND_COMPANY-US200908000729

PATIENT
  Sex: Female

DRUGS (9)
  1. FORTEO [Suspect]
     Dosage: UNK, UNK
     Dates: start: 20090601
  2. PLENDIL [Concomitant]
  3. PLAQUENIL [Concomitant]
  4. PREDNISONE [Concomitant]
  5. METHOTREXATE [Concomitant]
  6. CALCIUM                                 /N/A/ [Concomitant]
  7. VITAMINS NOS [Concomitant]
  8. TYLENOL (CAPLET) [Concomitant]
  9. MIRALAX [Concomitant]

REACTIONS (5)
  - ABASIA [None]
  - FALL [None]
  - INJECTION SITE HAEMATOMA [None]
  - MOBILITY DECREASED [None]
  - RIB FRACTURE [None]
